FAERS Safety Report 25979834 (Version 2)
Quarter: 2025Q4

REPORT INFORMATION
  Report Type: Spontaneous
  Country: US (occurrence: US)
  Receive Date: 20251030
  Receipt Date: 20251103
  Transmission Date: 20260118
  Serious: No
  Sender: PFIZER
  Company Number: US-PFIZER INC-PV202500128314

PATIENT
  Sex: Male

DRUGS (1)
  1. SPIRONOLACTONE [Suspect]
     Active Substance: SPIRONOLACTONE
     Dosage: UNK

REACTIONS (1)
  - Rash [Unknown]
